FAERS Safety Report 13042691 (Version 3)
Quarter: 2019Q2

REPORT INFORMATION
  Report Type: Spontaneous
  Country: US (occurrence: US)
  Receive Date: 20161219
  Receipt Date: 20190620
  Transmission Date: 20190711
  Serious: No
  Sender: FDA-Public Use
  Company Number: US-PFIZER INC-2016582682

PATIENT
  Age: 68 Year
  Sex: Female

DRUGS (1)
  1. GABAPENTIN. [Suspect]
     Active Substance: GABAPENTIN
     Indication: NEUROPATHY PERIPHERAL
     Dosage: 1200 MG, DAILY (DIVIDED)
     Route: 048
     Dates: start: 2002, end: 2008

REACTIONS (6)
  - Drug intolerance [Unknown]
  - Product use in unapproved indication [Unknown]
  - Lethargy [Recovered/Resolved]
  - Off label use [Unknown]
  - Drug hypersensitivity [Unknown]
  - Sedation complication [Recovered/Resolved]

NARRATIVE: CASE EVENT DATE: 2002
